FAERS Safety Report 24840697 (Version 1)
Quarter: 2025Q1

REPORT INFORMATION
  Report Type: Report from Study
  Country: ES (occurrence: ES)
  Receive Date: 20250114
  Receipt Date: 20250114
  Transmission Date: 20250408
  Serious: Yes (Death, Life-Threatening)
  Sender: PFIZER
  Company Number: None

PATIENT
  Age: 66 Year
  Sex: Male

DRUGS (2)
  1. IRINOTECAN HYDROCHLORIDE [Suspect]
     Active Substance: IRINOTECAN HYDROCHLORIDE
     Indication: Adenocarcinoma of colon
     Dates: start: 202304
  2. CETUXIMAB [Suspect]
     Active Substance: CETUXIMAB
     Indication: Adenocarcinoma of colon
     Dates: start: 202304

REACTIONS (3)
  - Enteritis [Fatal]
  - Neutropenia [Fatal]
  - Diarrhoea [Fatal]

NARRATIVE: CASE EVENT DATE: 20230731
